FAERS Safety Report 7388930-2 (Version None)
Quarter: 2011Q2

REPORT INFORMATION
  Report Type: 
  Country: None (occurrence: None)
  Receive Date: 20110401
  Receipt Date: 20110329
  Transmission Date: 20111010
  Serious: Yes (Other)
  Sender: FDA-Public Use
  Company Number: NL-PFIZER INC-2011030014

PATIENT
  Age: 62 Year
  Sex: Male
  Weight: 70 kg

DRUGS (2)
  1. EFFEXOR XR [Suspect]
     Indication: DEPRESSION
     Dosage: 225 UNK, UNK
     Route: 048
     Dates: start: 20070315
  2. FLURAZEPAM [Concomitant]
     Indication: SLEEP DISORDER
     Dosage: 30 UNK, 2X/WEEK
     Route: 048
     Dates: start: 20090602

REACTIONS (2)
  - AMNESIA [None]
  - COGNITIVE DISORDER [None]
